FAERS Safety Report 19631358 (Version 1)
Quarter: 2021Q3

REPORT INFORMATION
  Report Type: Spontaneous
  Country: US (occurrence: US)
  Receive Date: 20210729
  Receipt Date: 20210729
  Transmission Date: 20211014
  Serious: Yes (Hospitalization, Other)
  Sender: FDA-Public Use
  Company Number: US-TAKEDA-2021TUS045600

PATIENT
  Sex: Female
  Weight: 52 kg

DRUGS (1)
  1. CUVITRU [Suspect]
     Active Substance: HUMAN IMMUNOGLOBULIN G
     Indication: SELECTIVE IGG SUBCLASS DEFICIENCY
     Dosage: UNK, 1/WEEK
     Route: 065
     Dates: start: 202101

REACTIONS (7)
  - Meningitis [Unknown]
  - Vision blurred [Unknown]
  - Blood pressure increased [Unknown]
  - Gait disturbance [Unknown]
  - Cerebrovascular accident [Unknown]
  - Burning sensation [Unknown]
  - Tremor [Unknown]
